FAERS Safety Report 18985680 (Version 2)
Quarter: 2021Q1

REPORT INFORMATION
  Report Type: Other
  Country: GB (occurrence: GB)
  Receive Date: 20210309
  Receipt Date: 20210319
  Transmission Date: 20210420
  Serious: Yes (Other)
  Sender: FDA-Public Use
  Company Number: GB-GLENMARK PHARMACEUTICALS-2021GMK052572

PATIENT

DRUGS (3)
  1. TRIMETHOPRIM. [Concomitant]
     Active Substance: TRIMETHOPRIM
     Indication: PRODUCT USED FOR UNKNOWN INDICATION
     Dosage: 10 MILLILITER, BID
     Route: 065
     Dates: start: 20210126, end: 20210129
  2. CIRCADIN [Concomitant]
     Active Substance: MELATONIN
     Indication: PRODUCT USED FOR UNKNOWN INDICATION
     Dosage: 2 DOSAGE FORM, OD (TAKE IN EARLY EVENING)
     Route: 065
     Dates: start: 20190311
  3. ATOMOXETINE. [Suspect]
     Active Substance: ATOMOXETINE HYDROCHLORIDE
     Indication: PRODUCT USED FOR UNKNOWN INDICATION
     Dosage: 18 MILLIGRAM, OD
     Route: 065
     Dates: start: 20200902

REACTIONS (2)
  - Cyanosis [Unknown]
  - Raynaud^s phenomenon [Recovering/Resolving]

NARRATIVE: CASE EVENT DATE: 20210222
